FAERS Safety Report 12667534 (Version 8)
Quarter: 2017Q3

REPORT INFORMATION
  Report Type: Spontaneous
  Country: US (occurrence: US)
  Receive Date: 20160819
  Receipt Date: 20170801
  Transmission Date: 20171127
  Serious: Yes (Hospitalization, Other)
  Sender: FDA-Public Use
  Company Number: US-PFIZER INC-2016391011

PATIENT
  Age: 56 Year
  Sex: Female
  Weight: 152.4 kg

DRUGS (34)
  1. TRANSDERM SCOP [Concomitant]
     Active Substance: SCOPOLAMINE
     Indication: VOMITING
  2. IBRANCE [Suspect]
     Active Substance: PALBOCICLIB
     Dosage: 125 MG, CYCLIC [DAYS 1 THROUGH 21 OFF 7 DAYS]
     Route: 048
     Dates: start: 20160726, end: 20170207
  3. IBRANCE [Suspect]
     Active Substance: PALBOCICLIB
     Dosage: 125 MG, UNK
     Route: 048
     Dates: start: 20170221, end: 20170225
  4. EFFEXOR XR [Concomitant]
     Active Substance: VENLAFAXINE HYDROCHLORIDE
     Dosage: 150 MG, DAILY
     Route: 048
  5. ZOFRAN [Concomitant]
     Active Substance: ONDANSETRON HYDROCHLORIDE
     Dosage: 4 MG, AS NEEDED [EVERY 8 (EIGHT) HOURS]
     Route: 048
  6. PHENERGAN [Concomitant]
     Active Substance: PROMETHAZINE HYDROCHLORIDE
     Indication: VOMITING
  7. BENZONATATE. [Concomitant]
     Active Substance: BENZONATATE
     Indication: COUGH
     Dosage: 200 MG, AS NEEDED (1 CAPSULE 3 TIMES DAILY)
  8. IBRANCE [Suspect]
     Active Substance: PALBOCICLIB
     Dosage: 125 MG, UNK
     Route: 048
     Dates: start: 20170307
  9. PHENERGAN [Concomitant]
     Active Substance: PROMETHAZINE HYDROCHLORIDE
     Indication: NAUSEA
     Dosage: 25 MG, AS NEEDED [EVERY 6 (SIX) HOURS]
     Route: 048
  10. FASLODEX [Concomitant]
     Active Substance: FULVESTRANT
     Dosage: 10 ML, UNK (ONCE)
     Route: 030
  11. HEPARIN SODIUM. [Concomitant]
     Active Substance: HEPARIN SODIUM
     Dosage: 5 ML, SINGLE (LOCK FLUSH 500 UNITS, LNTRACATHETER ROUTE ONCE)
  12. LOPRESSOR [Concomitant]
     Active Substance: METOPROLOL TARTRATE
     Dosage: 25 MG, 2X/DAY
     Route: 048
  13. ASPIRIN. [Concomitant]
     Active Substance: ASPIRIN
     Dosage: 81 MG, DAILY
     Route: 048
  14. NITROSTAT [Concomitant]
     Active Substance: NITROGLYCERIN
     Indication: CHEST PAIN
     Dosage: 0.4 MG, AS NEEDED [EVERY 5 (FIVE) MINUTES]
     Route: 060
  15. FLONASE [Concomitant]
     Active Substance: FLUTICASONE PROPIONATE
     Dosage: 50 UG, DAILY [50MCG/ACT; USE 2 SPRAYS IN EACH NOSTRIL]
     Route: 045
  16. OS-CAL + D [Concomitant]
     Dosage: 1 DF, DAILY [CALCIUM 600MG] / [VITAMIN D 400MG]
  17. ZOFRAN [Concomitant]
     Active Substance: ONDANSETRON HYDROCHLORIDE
     Dosage: 16 MG, UNK (ONCE)
     Route: 042
  18. ROXICODONE [Concomitant]
     Active Substance: OXYCODONE HYDROCHLORIDE
     Dosage: UNK, AS NEEDED [1-2 TABLETS BY MOUTH EVERY 6 (SIX) HOUR]
     Route: 048
  19. NIFEDICAL XL [Concomitant]
     Active Substance: NIFEDIPINE
     Dosage: 60 MG, DAILY
     Route: 048
  20. XGEVA [Concomitant]
     Active Substance: DENOSUMAB
     Dosage: 120 MG, SINGLE (ONCE)
  21. IBRANCE [Suspect]
     Active Substance: PALBOCICLIB
     Dosage: 125 MG, UNK
     Dates: end: 20170530
  22. PRILOSEC [Concomitant]
     Active Substance: OMEPRAZOLE MAGNESIUM
     Dosage: 20 MG, DAILY (1 CAPSULE EVERY DAY)
     Route: 048
  23. EFFEXOR XR [Concomitant]
     Active Substance: VENLAFAXINE HYDROCHLORIDE
     Indication: HOT FLUSH
     Dosage: 75 MG, DAILY [AT BEDTIME]
  24. MOBIC [Concomitant]
     Active Substance: MELOXICAM
     Dosage: 7.5 MG, DAILY
     Route: 048
  25. MOBIC [Concomitant]
     Active Substance: MELOXICAM
     Dosage: 15 MG, DAILY
     Route: 048
  26. SENOKOT-S [Concomitant]
     Active Substance: DOCUSATE SODIUM\SENNOSIDES
     Dosage: 1 DF, 1X/DAY ([SENNOSIDES 8.6MG] / [DOCUSATE 50MG], NIGHTLY)
     Route: 048
  27. IBRANCE [Suspect]
     Active Substance: PALBOCICLIB
     Indication: BREAST CANCER METASTATIC
     Dosage: 125 MG, UNK
     Route: 048
     Dates: start: 20160722
  28. TRANSDERM SCOP [Concomitant]
     Active Substance: SCOPOLAMINE
     Indication: NAUSEA
     Dosage: UNK, AS NEEDED [EVERY THIRD DAY]
     Route: 062
  29. CRESTOR [Concomitant]
     Active Substance: ROSUVASTATIN CALCIUM
     Dosage: 20 MG, 1X/DAY [BED TIME]
     Route: 048
  30. ULTRAM [Concomitant]
     Active Substance: TRAMADOL HYDROCHLORIDE
     Dosage: 50 MG, AS NEEDED [EVERY 6 (SIX) HOURS]
     Route: 048
  31. DECADRON [Concomitant]
     Active Substance: DEXAMETHASONE
     Dosage: UNK (1000 MLS/SODIUM CHLORIDE 0.9 % 50 ML IVPB SODIUM CHLORIDE 0.9% INFUSION)
     Route: 042
  32. IBRANCE [Suspect]
     Active Substance: PALBOCICLIB
     Dosage: 100 MG, CYCLIC (21 DAYS ON, 7 DAYS OFF)
     Route: 048
     Dates: start: 20170418
  33. BRILINTA [Concomitant]
     Active Substance: TICAGRELOR
     Dosage: 90 MG, 2X/DAY
     Route: 048
  34. MYCOSTATIN [Concomitant]
     Active Substance: NYSTATIN
     Dosage: 5 ML, 4X/DAY
     Route: 048

REACTIONS (9)
  - Acute myocardial infarction [Recovered/Resolved]
  - Fatigue [Recovering/Resolving]
  - Dyspnoea [Recovered/Resolved]
  - Nausea [Not Recovered/Not Resolved]
  - Abdominal pain upper [Recovered/Resolved]
  - Stomatitis [Recovered/Resolved]
  - Vision blurred [Recovering/Resolving]
  - Full blood count decreased [Not Recovered/Not Resolved]
  - Pain [Not Recovered/Not Resolved]

NARRATIVE: CASE EVENT DATE: 201608
